FAERS Safety Report 13577954 (Version 1)
Quarter: 2017Q2

REPORT INFORMATION
  Report Type: Spontaneous
  Country: NL (occurrence: NL)
  Receive Date: 20170524
  Receipt Date: 20170524
  Transmission Date: 20170830
  Serious: Yes (Hospitalization, Other)
  Sender: FDA-Public Use
  Company Number: NL-TEVA-770296ACC

PATIENT
  Age: 94 Year
  Sex: Male
  Weight: 90 kg

DRUGS (12)
  1. ACETYLSALICYLZUUR TABLET  80MG [Concomitant]
     Route: 048
  2. METOPROLOL TABLET  100MG [Concomitant]
     Active Substance: METOPROLOL
     Route: 048
  3. AMOXICILLINE INJECTIEPOEDER 1000MG [Suspect]
     Active Substance: AMOXICILLIN
     Indication: ARTHRITIS
     Dosage: 12 GRAM DAILY;
     Route: 042
     Dates: start: 20170419, end: 20170502
  4. SIMVASTATINE TABLET 10MG [Concomitant]
     Active Substance: SIMVASTATIN
     Route: 048
  5. MAGNESIUMHYDROXIDE KAUWTABLET 724MG [Concomitant]
     Route: 048
  6. PANTOPRAZOLE SODIUM. [Concomitant]
     Active Substance: PANTOPRAZOLE SODIUM
     Route: 048
  7. DALTEPARINE INJECTIE/INFUUS [Concomitant]
     Dosage: 5000IE
     Route: 065
  8. HALOPERIDOL TABLET  1MG [Concomitant]
     Active Substance: HALOPERIDOL
     Route: 048
  9. CYRESS CAPSULE MGA 10MG [Concomitant]
     Route: 048
  10. TAMSULOSINE TABLET MGA 0,4MG [Concomitant]
     Route: 048
  11. COLECALCIFEROL CAPSULE    800IE [Concomitant]
     Route: 048
  12. PARACETAMOL [Concomitant]
     Active Substance: ACETAMINOPHEN
     Dosage: 4000 MILLIGRAM DAILY;
     Route: 065

REACTIONS (1)
  - Tubulointerstitial nephritis [Recovering/Resolving]

NARRATIVE: CASE EVENT DATE: 20170428
